FAERS Safety Report 16971214 (Version 2)
Quarter: 2019Q4

REPORT INFORMATION
  Report Type: Spontaneous
  Country: US (occurrence: US)
  Receive Date: 20191029
  Receipt Date: 20191030
  Transmission Date: 20200122
  Serious: Yes (Hospitalization, Other)
  Sender: FDA-Public Use
  Company Number: US-JNJFOC-20191029075

PATIENT
  Sex: Male
  Weight: 66.74 kg

DRUGS (2)
  1. DURAGESIC [Suspect]
     Active Substance: FENTANYL
     Indication: PAIN
     Route: 062
     Dates: start: 2003
  2. DURAGESIC [Suspect]
     Active Substance: FENTANYL
     Route: 062
     Dates: start: 2003

REACTIONS (6)
  - Medical device removal [Unknown]
  - Intervertebral disc operation [Unknown]
  - Spinal nerve stimulator implantation [Unknown]
  - Bone operation [Unknown]
  - Prostate cancer [Recovered/Resolved]
  - Pain [Not Recovered/Not Resolved]

NARRATIVE: CASE EVENT DATE: 2006
